FAERS Safety Report 7773549-1 (Version None)
Quarter: 2011Q3

REPORT INFORMATION
  Report Type: 
  Country: None (occurrence: None)
  Receive Date: 20110922
  Receipt Date: 20110916
  Transmission Date: 20111222
  Serious: Yes (Other)
  Sender: FDA-Public Use
  Company Number: JP-AMGEN-JPNCT2011048915

PATIENT
  Age: 81 Year
  Sex: Male
  Weight: 55 kg

DRUGS (7)
  1. CALCIUM CARBONATE [Concomitant]
     Indication: OSTEOPOROSIS
     Dosage: 2 DF, QD
     Route: 048
  2. URIEF [Concomitant]
     Indication: DYSURIA
     Dosage: 4 MG, BID
     Route: 048
     Dates: start: 20110525
  3. DENOSUMAB [Suspect]
     Indication: OSTEOPOROSIS
     Dosage: 60 MG, Q6MO
     Route: 058
     Dates: start: 20110204, end: 20110812
  4. HYALEIN [Concomitant]
     Indication: CATARACT
     Dosage: UNK UNK, UNK
     Route: 047
     Dates: start: 20090630
  5. CALBLOCK [Concomitant]
     Indication: HYPERTENSION
     Dosage: 4 MG, QD
     Route: 048
     Dates: start: 20100728
  6. MOHRUS TAPE [Concomitant]
     Indication: SPINAL OSTEOARTHRITIS
     Dosage: UNK UNK, UNK
     Route: 062
     Dates: start: 20090630
  7. MICARDIS [Concomitant]
     Indication: HYPERTENSION
     Dosage: 20 MG, QD
     Route: 048
     Dates: start: 20100624

REACTIONS (1)
  - PROSTATE CANCER [None]
